FAERS Safety Report 16391464 (Version 1)
Quarter: 2019Q2

REPORT INFORMATION
  Report Type: Spontaneous
  Country: CN (occurrence: CN)
  Receive Date: 20190605
  Receipt Date: 20190605
  Transmission Date: 20190711
  Serious: Yes (Other)
  Sender: FDA-Public Use
  Company Number: CN-ROCHE-2324331

PATIENT
  Age: 47 Year
  Sex: Male

DRUGS (12)
  1. XELODA [Suspect]
     Active Substance: CAPECITABINE
     Indication: METASTASES TO THE MEDIASTINUM
  2. XELODA [Suspect]
     Active Substance: CAPECITABINE
     Indication: METASTASES TO MUSCLE
  3. XELODA [Suspect]
     Active Substance: CAPECITABINE
     Indication: METASTASES TO BONE
  4. XELODA [Suspect]
     Active Substance: CAPECITABINE
     Indication: METASTASES TO ADRENALS
  5. XELODA [Suspect]
     Active Substance: CAPECITABINE
     Indication: METASTASIS
  6. APATINIB [Concomitant]
     Active Substance: APATINIB
     Indication: METASTASES TO ADRENALS
  7. APATINIB [Concomitant]
     Active Substance: APATINIB
     Indication: METASTASES TO MUSCLE
  8. XELODA [Suspect]
     Active Substance: CAPECITABINE
     Indication: METASTATIC GASTRIC CANCER
     Route: 048
     Dates: start: 20170106
  9. APATINIB [Concomitant]
     Active Substance: APATINIB
     Indication: METASTASES TO BONE
  10. APATINIB [Concomitant]
     Active Substance: APATINIB
     Indication: METASTASIS
  11. APATINIB [Concomitant]
     Active Substance: APATINIB
     Indication: METASTASES TO THE MEDIASTINUM
  12. APATINIB [Concomitant]
     Active Substance: APATINIB
     Indication: METASTATIC GASTRIC CANCER
     Route: 048
     Dates: start: 20170106

REACTIONS (6)
  - Ataxia [Unknown]
  - Aphasia [Unknown]
  - Skin swelling [Unknown]
  - Muscular weakness [Unknown]
  - Erythema [Unknown]
  - Infected skin ulcer [Unknown]
